FAERS Safety Report 5193580-2 (Version None)
Quarter: 2006Q4

REPORT INFORMATION
  Report Type: 
  Country: None (occurrence: None)
  Receive Date: 20061228
  Receipt Date: 20060913
  Transmission Date: 20070319
  Serious: No
  Sender: FDA-Public Use
  Company Number: US-GLAXOSMITHKLINE-A0620040A

PATIENT
  Age: 45 Year
  Sex: Male

DRUGS (3)
  1. FLONASE [Suspect]
     Dosage: 2SPR PER DAY
     Route: 045
     Dates: start: 20020101, end: 20060912
  2. ALLEGRA [Concomitant]
  3. SODIUM CHLORIDE 0.9% [Concomitant]

REACTIONS (1)
  - RHINORRHOEA [None]
